FAERS Safety Report 25926053 (Version 1)
Quarter: 2025Q4

REPORT INFORMATION
  Report Type: Spontaneous
  Country: IN (occurrence: IN)
  Receive Date: 20251015
  Receipt Date: 20251015
  Transmission Date: 20260117
  Serious: Yes (Life-Threatening, Hospitalization)
  Sender: ELI LILLY AND COMPANY
  Company Number: IN-ELI_LILLY_AND_COMPANY-IN202510014625

PATIENT

DRUGS (1)
  1. MOUNJARO [Suspect]
     Active Substance: TIRZEPATIDE
     Indication: Product used for unknown indication
     Dosage: 5 MG, UNKNOWN
     Route: 058

REACTIONS (6)
  - Drug hypersensitivity [Unknown]
  - General physical health deterioration [Unknown]
  - Diarrhoea [Unknown]
  - Dehydration [Unknown]
  - Emotional distress [Unknown]
  - Asthenia [Unknown]
